FAERS Safety Report 18451959 (Version 1)
Quarter: 2020Q4

REPORT INFORMATION
  Report Type: Spontaneous
  Country: US (occurrence: US)
  Receive Date: 20201031
  Receipt Date: 20201031
  Transmission Date: 20210114
  Serious: Yes (Other)
  Sender: FDA-Public Use
  Company Number: None

PATIENT
  Age: 61 Year
  Sex: Female
  Weight: 72.9 kg

DRUGS (3)
  1. DESVENLAFAXINE 50MG [Concomitant]
     Active Substance: DESVENLAFAXINE
     Dates: start: 20180130, end: 20190226
  2. PRISTIQ EXTENDED-RELEASE [Suspect]
     Active Substance: DESVENLAFAXINE SUCCINATE
     Indication: HOT FLUSH
     Route: 048
     Dates: start: 20180130, end: 20190226
  3. PRISTIQ EXTENDED-RELEASE [Suspect]
     Active Substance: DESVENLAFAXINE SUCCINATE
     Indication: ANXIETY
     Route: 048
     Dates: start: 20180130, end: 20190226

REACTIONS (5)
  - Dyspnoea [None]
  - Sputum abnormal [None]
  - Confusional state [None]
  - Balance disorder [None]
  - Sputum increased [None]

NARRATIVE: CASE EVENT DATE: 20190626
